FAERS Safety Report 5352435-0 (Version None)
Quarter: 2007Q2

REPORT INFORMATION
  Report Type: 
  Country: None (occurrence: None)
  Receive Date: 20070611
  Receipt Date: 20070606
  Transmission Date: 20071010
  Serious: Yes (Hospitalization)
  Sender: FDA-Public Use
  Company Number: A0654390A

PATIENT
  Age: 72 Year
  Sex: Male

DRUGS (7)
  1. AVANDIA [Suspect]
     Dosage: 2MG PER DAY
     Route: 048
     Dates: start: 20020101
  2. METFORMIN HCL [Concomitant]
  3. GLUCOTROL [Concomitant]
  4. PRILOSEC [Concomitant]
  5. PURINETHOL [Concomitant]
  6. LASIX [Concomitant]
  7. DARVOCET [Concomitant]

REACTIONS (3)
  - CARDIAC FAILURE [None]
  - DIZZINESS [None]
  - FLUID RETENTION [None]
